FAERS Safety Report 12964677 (Version 1)
Quarter: 2016Q4

REPORT INFORMATION
  Report Type: Spontaneous
  Country: US (occurrence: US)
  Receive Date: 20161122
  Receipt Date: 20161122
  Transmission Date: 20170207
  Serious: Yes (Hospitalization)
  Sender: FDA-Public Use
  Company Number: US-PFIZER INC-2016526324

PATIENT
  Age: 72 Year
  Sex: Male

DRUGS (4)
  1. VANCOMYCIN HCL [Suspect]
     Active Substance: VANCOMYCIN HYDROCHLORIDE
     Indication: STAPHYLOCOCCAL SEPSIS
     Dosage: UNK; 3 DAYS A WEEK POST-HEMODIALYSIS FOR A 4-WEEK COURSE
     Route: 042
  2. CARBIDOPA/LEVODOPA [Concomitant]
     Dosage: UNK
  3. ASPIRIN. [Concomitant]
     Active Substance: ASPIRIN
     Dosage: UNK
  4. AMLODIPINE [Concomitant]
     Active Substance: AMLODIPINE BESYLATE
     Dosage: UNK

REACTIONS (1)
  - Henoch-Schonlein purpura [Recovered/Resolved]
